FAERS Safety Report 18188127 (Version 1)
Quarter: 2020Q3

REPORT INFORMATION
  Report Type: Spontaneous
  Country: US (occurrence: US)
  Receive Date: 20200824
  Receipt Date: 20200824
  Transmission Date: 20201103
  Serious: No
  Sender: FDA-Public Use
  Company Number: US-009507513-2008USA008482

PATIENT
  Age: 4 Decade
  Sex: Female

DRUGS (3)
  1. PREDNISONE. [Concomitant]
     Active Substance: PREDNISONE
     Dosage: 10 MILLIGRAM, QD
  2. DOXYCYCLINE. [Concomitant]
     Active Substance: DOXYCYCLINE
  3. INVANZ [Suspect]
     Active Substance: ERTAPENEM SODIUM
     Indication: SUBCUTANEOUS ABSCESS

REACTIONS (1)
  - Product use in unapproved indication [Unknown]
